FAERS Safety Report 5369375-3 (Version None)
Quarter: 2007Q2

REPORT INFORMATION
  Report Type: 
  Country: None (occurrence: None)
  Receive Date: 20070625
  Receipt Date: 20070409
  Transmission Date: 20071010
  Serious: No
  Sender: FDA-Public Use
  Company Number: US-ASTRAZENECA-2007UW06969

PATIENT
  Age: 50 Year
  Sex: Female

DRUGS (6)
  1. CRESTOR [Suspect]
     Route: 048
  2. HYDROCHLOROTHIAZIDE [Concomitant]
  3. ZESTRIL [Concomitant]
  4. LORA TAB [Concomitant]
  5. FISH OIL [Concomitant]
  6. FOLIC ACID [Concomitant]
     Dosage: 1000 MCG

REACTIONS (1)
  - ALOPECIA [None]
